FAERS Safety Report 6416161-9 (Version None)
Quarter: 2009Q4

REPORT INFORMATION
  Report Type: 
  Country: None (occurrence: None)
  Receive Date: 20091023
  Receipt Date: 20091007
  Transmission Date: 20100525
  Serious: Yes (Life-Threatening, Other)
  Sender: FDA-Public Use
  Company Number: APP200900648

PATIENT
  Age: 57 Year
  Sex: Female
  Weight: 52.1637 kg

DRUGS (12)
  1. DIPRIVAN [Suspect]
     Indication: CATHETERISATION CARDIAC
     Dosage: 30 MG, ONCE, INTRAVENOUS 50 MG, ONCE, INTRAVENOUS 5 ML , 1 IN 1 HR, INTRAVENOUS
     Route: 042
     Dates: start: 20080521, end: 20080521
  2. DIPRIVAN [Suspect]
     Indication: CATHETERISATION CARDIAC
     Dosage: 30 MG, ONCE, INTRAVENOUS 50 MG, ONCE, INTRAVENOUS 5 ML , 1 IN 1 HR, INTRAVENOUS
     Route: 042
     Dates: start: 20080521, end: 20080521
  3. DIPRIVAN [Suspect]
     Indication: CATHETERISATION CARDIAC
     Dosage: 30 MG, ONCE, INTRAVENOUS 50 MG, ONCE, INTRAVENOUS 5 ML , 1 IN 1 HR, INTRAVENOUS
     Route: 042
     Dates: start: 20080521, end: 20080521
  4. VERSED [Concomitant]
  5. SUCCINYLCHOLINE CHLORIDE [Concomitant]
  6. ATIVAN [Concomitant]
  7. ASPIRIN [Concomitant]
  8. PLAVIX [Concomitant]
  9. NITROGLYCERIN [Concomitant]
  10. HEPARIN [Concomitant]
  11. LASIX [Concomitant]
  12. SODIUM CHLORIDE [Concomitant]

REACTIONS (3)
  - ACUTE MYOCARDIAL INFARCTION [None]
  - RESPIRATORY DISTRESS [None]
  - RESPIRATORY FAILURE [None]
